FAERS Safety Report 25685555 (Version 1)
Quarter: 2025Q3

REPORT INFORMATION
  Report Type: Spontaneous
  Country: US (occurrence: US)
  Receive Date: 20250815
  Receipt Date: 20250815
  Transmission Date: 20251021
  Serious: No
  Sender: ROCHE
  Company Number: US-ROCHE-10000358371

PATIENT
  Age: 34 Year
  Sex: Female

DRUGS (8)
  1. XOLAIR [Suspect]
     Active Substance: OMALIZUMAB
     Indication: Chronic spontaneous urticaria
     Route: 065
  2. XOLAIR [Suspect]
     Active Substance: OMALIZUMAB
     Indication: Food allergy
  3. XOLAIR [Suspect]
     Active Substance: OMALIZUMAB
     Indication: Cockroach allergy
  4. XOLAIR [Suspect]
     Active Substance: OMALIZUMAB
     Indication: Dust allergy
  5. XOLAIR [Suspect]
     Active Substance: OMALIZUMAB
     Indication: Allergy to animal
  6. ALLEGRA [Concomitant]
     Active Substance: FEXOFENADINE HYDROCHLORIDE
  7. ZYRTEC [Concomitant]
     Active Substance: CETIRIZINE HYDROCHLORIDE
  8. PEPCID [Concomitant]
     Active Substance: FAMOTIDINE

REACTIONS (1)
  - Urticaria [Unknown]
